FAERS Safety Report 15669604 (Version 1)
Quarter: 2018Q4

REPORT INFORMATION
  Report Type: Spontaneous
  Country: AU (occurrence: AU)
  Receive Date: 20181129
  Receipt Date: 20181129
  Transmission Date: 20190205
  Serious: Yes (Other)
  Sender: FDA-Public Use
  Company Number: AU-MYLANLABS-2018M1088679

PATIENT
  Sex: Female

DRUGS (2)
  1. NUPENTIN TABS [Suspect]
     Active Substance: GABAPENTIN
     Indication: MULTIPLE SCLEROSIS
     Dosage: UNK
  2. NUPENTIN TABS [Suspect]
     Active Substance: GABAPENTIN
     Indication: NEURALGIA

REACTIONS (3)
  - Balance disorder [Unknown]
  - Urinary incontinence [Unknown]
  - Asthenia [Unknown]
